FAERS Safety Report 22354533 (Version 2)
Quarter: 2023Q2

REPORT INFORMATION
  Report Type: Spontaneous
  Country: US (occurrence: US)
  Receive Date: 20230523
  Receipt Date: 20230622
  Transmission Date: 20230722
  Serious: No
  Sender: FDA-Public Use
  Company Number: US-KARYOPHARM-2023KPT001219

PATIENT

DRUGS (2)
  1. XPOVIO [Suspect]
     Active Substance: SELINEXOR
     Indication: Plasma cell myeloma
     Dosage: 60 MG, 2X/WEEK
     Route: 048
     Dates: start: 20230414, end: 2023
  2. XPOVIO [Suspect]
     Active Substance: SELINEXOR
     Dosage: 40 MG, 2X/WEEK
     Route: 048
     Dates: start: 2023, end: 2023

REACTIONS (2)
  - Full blood count decreased [Unknown]
  - Dyspnoea [Not Recovered/Not Resolved]

NARRATIVE: CASE EVENT DATE: 20230101
